FAERS Safety Report 20706711 (Version 1)
Quarter: 2022Q2

REPORT INFORMATION
  Report Type: Spontaneous
  Country: US (occurrence: None)
  Receive Date: 20220413
  Receipt Date: 20220413
  Transmission Date: 20220720
  Serious: No
  Sender: FDA-Public Use
  Company Number: None

PATIENT
  Age: 50 Year
  Sex: Female

DRUGS (1)
  1. CAPECITABINE [Suspect]
     Active Substance: CAPECITABINE
     Indication: Breast cancer
     Dosage: OTHER QUANTITY : 2000MG AM 1500MG;?FREQUENCY : TWICE A DAY;?
     Route: 048
     Dates: start: 202201

REACTIONS (8)
  - Nausea [None]
  - Taste disorder [None]
  - Tinnitus [None]
  - Papilloedema [None]
  - Headache [None]
  - Dizziness [None]
  - Intracranial pressure increased [None]
  - Diplopia [None]

NARRATIVE: CASE EVENT DATE: 20220317
